FAERS Safety Report 17242143 (Version 1)
Quarter: 2020Q1

REPORT INFORMATION
  Report Type: Spontaneous
  Country: US (occurrence: US)
  Receive Date: 20200106
  Receipt Date: 20200106
  Transmission Date: 20200409
  Serious: Yes (Other)
  Sender: FDA-Public Use
  Company Number: None

PATIENT
  Age: 79 Year
  Sex: Male
  Weight: 76.5 kg

DRUGS (6)
  1. VICKS NYQUIL HBP COLD AND FLU [Suspect]
     Active Substance: ACETAMINOPHEN\DEXTROMETHORPHAN HYDROBROMIDE\DOXYLAMINE SUCCINATE
     Indication: LOWER RESPIRATORY TRACT CONGESTION
     Dosage: ?          QUANTITY:1 30 ML;?
     Route: 048
     Dates: start: 20200105, end: 20200106
  2. VICKS NYQUIL HBP COLD AND FLU [Suspect]
     Active Substance: ACETAMINOPHEN\DEXTROMETHORPHAN HYDROBROMIDE\DOXYLAMINE SUCCINATE
     Indication: NASAL CONGESTION
     Dosage: ?          QUANTITY:1 30 ML;?
     Route: 048
     Dates: start: 20200105, end: 20200106
  3. VICKS NYQUIL HBP COLD AND FLU [Suspect]
     Active Substance: ACETAMINOPHEN\DEXTROMETHORPHAN HYDROBROMIDE\DOXYLAMINE SUCCINATE
     Indication: COUGH
     Dosage: ?          QUANTITY:1 30 ML;?
     Route: 048
     Dates: start: 20200105, end: 20200106
  4. ROBITUSSIN (GUAIFENESIN) [Suspect]
     Active Substance: GUAIFENESIN
     Indication: RHINORRHOEA
     Dosage: ?          QUANTITY:1 20 ML;?
     Route: 048
     Dates: start: 20200103, end: 20200104
  5. ROBITUSSIN (GUAIFENESIN) [Suspect]
     Active Substance: GUAIFENESIN
     Indication: COUGH
     Dosage: ?          QUANTITY:1 20 ML;?
     Route: 048
     Dates: start: 20200103, end: 20200104
  6. ROBITUSSIN (GUAIFENESIN) [Suspect]
     Active Substance: GUAIFENESIN
     Indication: LOWER RESPIRATORY TRACT CONGESTION
     Dosage: ?          QUANTITY:1 20 ML;?
     Route: 048
     Dates: start: 20200103, end: 20200104

REACTIONS (2)
  - Rash maculo-papular [None]
  - Rash pruritic [None]

NARRATIVE: CASE EVENT DATE: 20200106
